FAERS Safety Report 26010805 (Version 1)
Quarter: 2025Q4

REPORT INFORMATION
  Report Type: Spontaneous
  Country: EU (occurrence: EU)
  Receive Date: 20251107
  Receipt Date: 20251107
  Transmission Date: 20260117
  Serious: Yes (Hospitalization)
  Sender: BAUSCH AND LOMB
  Company Number: EU-002147023-NVSC2025HU162729

PATIENT
  Age: 36 Year
  Sex: Female

DRUGS (4)
  1. DICLOFENAC SODIUM [Suspect]
     Active Substance: DICLOFENAC SODIUM
     Indication: Pain
     Route: 065
  2. DICLOFENAC SODIUM\ORPHENADRINE CITRATE [Concomitant]
     Active Substance: DICLOFENAC SODIUM\ORPHENADRINE CITRATE
     Indication: Pain
     Dosage: 250 ML, BID (2X250 ML)
  3. ACETAMINOPHEN [Concomitant]
     Active Substance: ACETAMINOPHEN
     Indication: Pain
     Dosage: 1 G, TID (3X1 G)
  4. ORPHENADRINE [Concomitant]
     Active Substance: ORPHENADRINE
     Indication: Pain
     Dosage: 120 MG

REACTIONS (2)
  - Inflammatory marker increased [Recovered/Resolved]
  - Post procedural fever [Recovered/Resolved]
